FAERS Safety Report 4268617-5 (Version None)
Quarter: 2004Q1

REPORT INFORMATION
  Report Type: 
  Country: None (occurrence: None)
  Receive Date: 20040108
  Receipt Date: 20031226
  Transmission Date: 20041129
  Serious: Yes (Hospitalization)
  Sender: FDA-Public Use
  Company Number: 200323093GDDC

PATIENT
  Sex: Female

DRUGS (3)
  1. INDAPAMIDE [Suspect]
     Dosage: 2.5 MG/DAY PO
     Route: 048
     Dates: end: 20030618
  2. ASPIRIN [Concomitant]
  3. VERAPAMIL [Concomitant]

REACTIONS (3)
  - ATRIAL FIBRILLATION [None]
  - HYPOKALAEMIA [None]
  - PALPITATIONS [None]
